FAERS Safety Report 8113085-6 (Version None)
Quarter: 2012Q1

REPORT INFORMATION
  Report Type: 
  Country: None (occurrence: None)
  Receive Date: 20120203
  Receipt Date: 20120130
  Transmission Date: 20120608
  Serious: Yes (Death)
  Sender: FDA-Public Use
  Company Number: HU-GLAXOSMITHKLINE-B0779015A

PATIENT
  Sex: Male

DRUGS (1)
  1. ATRIANCE [Suspect]
     Indication: LEUKAEMIA
     Route: 065

REACTIONS (5)
  - PAIN IN EXTREMITY [None]
  - PARALYSIS [None]
  - HYPOAESTHESIA [None]
  - LEUKAEMIA [None]
  - CONDITION AGGRAVATED [None]
